FAERS Safety Report 5132307-7 (Version None)
Quarter: 2006Q4

REPORT INFORMATION
  Report Type: 
  Country: None (occurrence: None)
  Receive Date: 20061020
  Receipt Date: 20061020
  Transmission Date: 20070319
  Serious: Yes (Other)
  Sender: FDA-Public Use
  Company Number: None

PATIENT
  Sex: Male

DRUGS (1)
  1. CIDOFOVIR [Suspect]

REACTIONS (5)
  - DRUG HYPERSENSITIVITY [None]
  - NERVE INJURY [None]
  - NEURALGIA [None]
  - OSTEOARTHRITIS [None]
  - OSTEONECROSIS [None]
